FAERS Safety Report 4761743-3 (Version None)
Quarter: 2005Q3

REPORT INFORMATION
  Report Type: 
  Country: None (occurrence: None)
  Receive Date: 20050906
  Receipt Date: 20050714
  Transmission Date: 20060218
  Serious: Yes (Disabling)
  Sender: FDA-Public Use
  Company Number: PHFR2005GB02471

PATIENT
  Age: 65 Year
  Sex: Male

DRUGS (9)
  1. BACLOFEN [Suspect]
     Dosage: UNK, UNK
     Route: 048
  2. BACLOFEN [Suspect]
     Dosage: 10 MG, BID
     Route: 048
  3. TIZANIDINE HCL [Concomitant]
     Dosage: 2 MG, QD
     Route: 065
  4. AMLODIPINE [Concomitant]
     Dosage: 10 MG, QD
     Route: 048
  5. PERINDOPRIL [Concomitant]
     Dosage: 2 MG, QD
     Route: 048
  6. PREDNISOLONE [Concomitant]
     Dosage: 10 MG, QD
     Route: 048
  7. RANITIDINE HCL [Concomitant]
     Dosage: 150 MG, BID
     Route: 048
  8. ASPIRIN [Concomitant]
     Dosage: 75 MG, QD
     Route: 048
  9. AMITRIPTYLINE HCL [Concomitant]
     Dosage: 25G/NOCTE
     Route: 048

REACTIONS (2)
  - MUSCLE SPASTICITY [None]
  - PARADOXICAL DRUG REACTION [None]
